FAERS Safety Report 7458866-7 (Version None)
Quarter: 2011Q2

REPORT INFORMATION
  Report Type: 
  Country: None (occurrence: None)
  Receive Date: 20110421
  Receipt Date: 20110418
  Transmission Date: 20111010
  Serious: Yes (Other)
  Sender: FDA-Public Use
  Company Number: AECAN201100049

PATIENT

DRUGS (16)
  1. IGIVNEX [Suspect]
  2. GAMUNEX [Suspect]
  3. GAMUNEX [Suspect]
  4. GAMUNEX [Suspect]
  5. GAMUNEX [Suspect]
  6. GAMUNEX [Suspect]
  7. GAMUNEX [Suspect]
     Indication: PRODUCT USED FOR UNKNOWN INDICATION
     Dosage: IV
     Route: 042
     Dates: start: 20081002, end: 20090428
  8. GAMUNEX [Suspect]
  9. GAMUNEX [Suspect]
  10. GAMUNEX [Suspect]
  11. IGIVNEX [Suspect]
     Indication: PRODUCT USED FOR UNKNOWN INDICATION
     Dosage: IV
     Route: 042
     Dates: start: 20081006, end: 20081006
  12. IGIVNEX [Suspect]
  13. GAMUNEX [Suspect]
  14. GAMUNEX [Suspect]
  15. GAMUNEX [Suspect]
  16. GAMUNEX [Suspect]

REACTIONS (1)
  - HEPATITIS C VIRUS TEST POSITIVE [None]
